FAERS Safety Report 12729307 (Version 1)
Quarter: 2016Q3

REPORT INFORMATION
  Report Type: Spontaneous
  Country: US (occurrence: US)
  Receive Date: 20160908
  Receipt Date: 20160908
  Transmission Date: 20161109
  Serious: Yes (Disabling, Other)
  Sender: FDA-Public Use
  Company Number: None

PATIENT
  Age: 54 Year
  Sex: Female
  Weight: 76.5 kg

DRUGS (16)
  1. PROVIGIL [Concomitant]
     Active Substance: MODAFINIL
  2. SELENIUM [Concomitant]
     Active Substance: SELENIUM
  3. NAMENDA [Suspect]
     Active Substance: MEMANTINE HYDROCHLORIDE
     Indication: MULTIPLE SCLEROSIS
     Route: 048
     Dates: start: 20160629, end: 20160723
  4. PREDNISONE. [Concomitant]
     Active Substance: PREDNISONE
  5. VITAMIN E [Concomitant]
     Active Substance: .ALPHA.-TOCOPHEROL
  6. ALLEGRA [Concomitant]
     Active Substance: FEXOFENADINE HYDROCHLORIDE
  7. BENADRYL [Concomitant]
     Active Substance: DIPHENHYDRAMINE HYDROCHLORIDE
  8. TYLENOL [Concomitant]
     Active Substance: ACETAMINOPHEN
  9. BETASERON INJECTION [Concomitant]
  10. BACLOFEN. [Concomitant]
     Active Substance: BACLOFEN
  11. MICARDIS [Concomitant]
     Active Substance: TELMISARTAN
  12. VITAMIN D3 [Concomitant]
     Active Substance: CHOLECALCIFEROL
  13. NAMENDA [Suspect]
     Active Substance: MEMANTINE HYDROCHLORIDE
     Indication: COGNITIVE DISORDER
     Route: 048
     Dates: start: 20160629, end: 20160723
  14. COREG CR [Concomitant]
     Active Substance: CARVEDILOL PHOSPHATE
  15. VITAMIN C [Concomitant]
     Active Substance: ASCORBIC ACID
  16. BETACARIINE (VITAMIN A) [Concomitant]

REACTIONS (10)
  - Therapy non-responder [None]
  - Dysphonia [None]
  - Pharyngeal oedema [None]
  - Temperature intolerance [None]
  - Hypersensitivity [None]
  - Erythema [None]
  - Local swelling [None]
  - Swelling face [None]
  - Skin irritation [None]
  - Oropharyngeal pain [None]

NARRATIVE: CASE EVENT DATE: 20160725
